FAERS Safety Report 20937328 (Version 1)
Quarter: 2022Q2

REPORT INFORMATION
  Report Type: Other
  Country: KR (occurrence: None)
  Receive Date: 20220609
  Receipt Date: 20220609
  Transmission Date: 20220720
  Serious: Yes (Hospitalization, Other)
  Sender: FDA-Public Use
  Company Number: KR-ROCHE-2710433

PATIENT
  Age: 59 Year
  Sex: Male

DRUGS (12)
  1. ATEZOLIZUMAB [Suspect]
     Active Substance: ATEZOLIZUMAB
     Indication: Hepatocellular carcinoma
     Dosage: SUBSEQUENT DOSE: 16/OCT/2020, 06/NOV/2020, 27/NOV/2020, 18/DEC/2020, 08/JAN/2021, 03/FEB/2021, 24/FE
     Route: 041
     Dates: start: 20200925
  2. BEVACIZUMAB [Suspect]
     Active Substance: BEVACIZUMAB
     Indication: Hepatocellular carcinoma
     Dosage: 1 VIAL OF 100 MG AND 2 VIALS OF 400 MG
     Route: 042
     Dates: start: 20200925
  3. BEVACIZUMAB [Suspect]
     Active Substance: BEVACIZUMAB
     Dosage: 1 VIAL OF 100 MG AND 2 VIALS OF 400 MG
     Route: 042
     Dates: start: 20201016
  4. BEVACIZUMAB [Suspect]
     Active Substance: BEVACIZUMAB
     Dosage: 1.525 VIAL OF 100 MG AND 2 VIALS OF 400 MG
     Route: 042
     Dates: start: 20201106
  5. BEVACIZUMAB [Suspect]
     Active Substance: BEVACIZUMAB
     Dosage: 1.35 VIAL OF 100 MG AND 2 VIALS OF 400 MG
     Route: 042
     Dates: start: 20210224
  6. BEVACIZUMAB [Suspect]
     Active Substance: BEVACIZUMAB
     Dosage: 1.36 VIAL OF 100 MG AND 2 VIALS OF 400 MG
     Route: 042
     Dates: start: 20201127
  7. BEVACIZUMAB [Suspect]
     Active Substance: BEVACIZUMAB
     Dosage: 1.6 VIAL OF 100 MG AND 2 VIALS OF 400 MG
     Route: 042
     Dates: start: 20201218
  8. BEVACIZUMAB [Suspect]
     Active Substance: BEVACIZUMAB
     Dosage: 1.3  VIAL OF 100 MG AND 2 VIALS OF 400 MG
     Route: 042
     Dates: start: 20210108
  9. BEVACIZUMAB [Suspect]
     Active Substance: BEVACIZUMAB
     Dosage: 1.45 VIAL OF 100 MG AND 2 VIALS OF 400 MG
     Route: 042
     Dates: start: 20210203
  10. BEVACIZUMAB [Suspect]
     Active Substance: BEVACIZUMAB
     Dosage: 1.225 VIAL OF 100 MG AND 2 VIALS OF 400 MG
     Route: 042
     Dates: start: 20210407
  11. BEVACIZUMAB [Suspect]
     Active Substance: BEVACIZUMAB
     Dosage: 1 VIAL OF 100 MG AND 2 VIALS OF 400 MG
     Route: 042
     Dates: start: 20220415
  12. BEVACIZUMAB [Suspect]
     Active Substance: BEVACIZUMAB
     Dosage: 1.15 VIAL OF 100 MG AND 2 VIALS OF 400 MG
     Route: 042
     Dates: start: 20220506

REACTIONS (3)
  - Proteinuria [Recovering/Resolving]
  - Epistaxis [Recovering/Resolving]
  - Acute kidney injury [Recovering/Resolving]

NARRATIVE: CASE EVENT DATE: 20201016
